FAERS Safety Report 10185337 (Version 2)
Quarter: 2014Q2

REPORT INFORMATION
  Report Type: Spontaneous
  Country: US (occurrence: US)
  Receive Date: 20140521
  Receipt Date: 20140606
  Transmission Date: 20141212
  Serious: Yes (Other)
  Sender: FDA-Public Use
  Company Number: US-PFIZER INC-2014137881

PATIENT
  Age: 79 Year
  Sex: Male

DRUGS (2)
  1. SUTENT [Suspect]
     Dosage: 12.5 MG, UNK
  2. SUTENT [Suspect]
     Dosage: 25 MG, UNK

REACTIONS (1)
  - Cerebrovascular accident [Unknown]
